FAERS Safety Report 6296825-0 (Version None)
Quarter: 2009Q3

REPORT INFORMATION
  Report Type: 
  Country: None (occurrence: None)
  Receive Date: 20090804
  Receipt Date: 20090731
  Transmission Date: 20100115
  Serious: Yes (Life-Threatening, Hospitalization, Other)
  Sender: FDA-Public Use
  Company Number: PHHY2009BR32139

PATIENT
  Sex: Male
  Weight: 22 kg

DRUGS (2)
  1. TRILEPTAL [Suspect]
     Indication: EPILEPSY
     Dosage: 8 ML, BID
     Route: 048
     Dates: start: 20070101
  2. TRILEPTAL [Suspect]
     Dosage: 4 ML IN MORNING AND 8 ML IN NIGHT
     Route: 048

REACTIONS (8)
  - APPARENT DEATH [None]
  - DYSTONIA [None]
  - EYE DISORDER [None]
  - FEELING ABNORMAL [None]
  - GAIT DISTURBANCE [None]
  - HEADACHE [None]
  - TREMOR [None]
  - VISUAL IMPAIRMENT [None]
